FAERS Safety Report 9345865 (Version 1)
Quarter: 2013Q2

REPORT INFORMATION
  Report Type: Spontaneous
  Country: US (occurrence: US)
  Receive Date: 20130613
  Receipt Date: 20130613
  Transmission Date: 20140414
  Serious: No
  Sender: FDA-Public Use
  Company Number: US-BAYER-2013-071248

PATIENT
  Age: 73 Year
  Sex: Male
  Weight: 100 kg

DRUGS (4)
  1. ALEVE CAPLET [Suspect]
     Dosage: 2 DF, BID
     Route: 048
     Dates: start: 2013
  2. VITAMINS [Concomitant]
  3. ASPIRIN [Concomitant]
  4. TRAMADOL [Concomitant]

REACTIONS (5)
  - Joint swelling [None]
  - Local swelling [None]
  - Incorrect dose administered [None]
  - Drug ineffective [None]
  - Incorrect drug administration duration [None]
